FAERS Safety Report 9625306 (Version 1)
Quarter: 2013Q4

REPORT INFORMATION
  Report Type: Spontaneous
  Country: US (occurrence: US)
  Receive Date: 20131016
  Receipt Date: 20131016
  Transmission Date: 20140711
  Serious: No
  Sender: FDA-Public Use
  Company Number: US-PFIZER INC-2013292189

PATIENT
  Age: 54 Year
  Sex: Male

DRUGS (6)
  1. ADVIL [Suspect]
     Dosage: UNK
  2. IBUPROFEN [Suspect]
     Dosage: UNK
  3. NAPROXEN SODIUM [Suspect]
     Dosage: UNK
  4. MOTRIN [Suspect]
     Dosage: UNK
  5. ALEVE [Suspect]
     Dosage: UNK
  6. IBUPROFEN [Suspect]
     Dosage: UNK

REACTIONS (2)
  - Dyspepsia [Unknown]
  - Abdominal discomfort [Unknown]
